FAERS Safety Report 18199277 (Version 1)
Quarter: 2020Q3

REPORT INFORMATION
  Report Type: Spontaneous
  Country: US (occurrence: US)
  Receive Date: 20200826
  Receipt Date: 20200826
  Transmission Date: 20201103
  Serious: No
  Sender: FDA-Public Use
  Company Number: US-ASTRAZENECA-2020SF04403

PATIENT
  Age: 72 Year
  Sex: Female

DRUGS (1)
  1. SYMBICORT [Suspect]
     Active Substance: BUDESONIDE\FORMOTEROL FUMARATE DIHYDRATE
     Indication: ASTHMA
     Dosage: 160/4.5 UG, 2 PUFFS, TWO TIMES A DAY
     Route: 055
     Dates: start: 20200705, end: 20200812

REACTIONS (6)
  - Sinusitis [Unknown]
  - Vision blurred [Not Recovered/Not Resolved]
  - Mental disorder [Unknown]
  - Intraocular pressure increased [Not Recovered/Not Resolved]
  - Anxiety [Not Recovered/Not Resolved]
  - Headache [Not Recovered/Not Resolved]
